FAERS Safety Report 4904629-3 (Version None)
Quarter: 2006Q1

REPORT INFORMATION
  Report Type: 
  Country: None (occurrence: None)
  Receive Date: 20060208
  Receipt Date: 20051201
  Transmission Date: 20060701
  Serious: No
  Sender: FDA-Public Use
  Company Number: US-GLAXOSMITHKLINE-A0585478A

PATIENT
  Sex: Female

DRUGS (2)
  1. PAXIL [Suspect]
     Indication: ANTIDEPRESSANT THERAPY
     Route: 065
  2. ANTIDEPRESSANT [Concomitant]

REACTIONS (1)
  - DRUG INTOLERANCE [None]
